FAERS Safety Report 11419794 (Version 1)
Quarter: 2015Q3

REPORT INFORMATION
  Report Type: Spontaneous
  Country: JP (occurrence: JP)
  Receive Date: 20150826
  Receipt Date: 20150826
  Transmission Date: 20151125
  Serious: Yes (Hospitalization, Other)
  Sender: FDA-Public Use
  Company Number: JP-PFIZER INC-2015279618

PATIENT
  Age: 60 Year
  Sex: Female

DRUGS (1)
  1. LYRICA [Suspect]
     Active Substance: PREGABALIN
     Dosage: 250 MG, DAILY (125 MG IN THE MORNING AND 125 MG IN THE EVENING)
     Route: 048

REACTIONS (4)
  - Decreased appetite [Unknown]
  - Contusion [Unknown]
  - Cerebral haemorrhage [Unknown]
  - Bone fissure [Unknown]
